FAERS Safety Report 16461966 (Version 1)
Quarter: 2019Q2

REPORT INFORMATION
  Report Type: Spontaneous
  Country: US (occurrence: US)
  Receive Date: 20190621
  Receipt Date: 20190621
  Transmission Date: 20190711
  Serious: No
  Sender: FDA-Public Use
  Company Number: US-GLAXOSMITHKLINE-US2019105027

PATIENT
  Age: 57 Year
  Sex: Female

DRUGS (3)
  1. BENLYSTA [Suspect]
     Active Substance: BELIMUMAB
     Indication: SYSTEMIC LUPUS ERYTHEMATOSUS
     Dosage: UNK UNK, WE
     Route: 058
     Dates: end: 20190501
  2. WELLBUTRIN [Suspect]
     Active Substance: BUPROPION HYDROCHLORIDE
     Indication: PRODUCT USED FOR UNKNOWN INDICATION
     Dosage: UNK
     Dates: end: 20190110
  3. PLAQUENIL [Suspect]
     Active Substance: HYDROXYCHLOROQUINE SULFATE
     Indication: PRODUCT USED FOR UNKNOWN INDICATION
     Dosage: UNK
     Route: 065

REACTIONS (12)
  - Agitation [Recovered/Resolved]
  - Feeling abnormal [Recovered/Resolved]
  - Multiple allergies [Unknown]
  - Pain of skin [Unknown]
  - Skin burning sensation [Unknown]
  - Fear [Recovered/Resolved]
  - Crying [Recovered/Resolved]
  - Pruritus generalised [Unknown]
  - Eye irritation [Unknown]
  - Overdose [Unknown]
  - Anger [Not Recovered/Not Resolved]
  - Screaming [Recovered/Resolved]

NARRATIVE: CASE EVENT DATE: 201904
